FAERS Safety Report 4450251-5 (Version None)
Quarter: 2004Q3

REPORT INFORMATION
  Report Type: 
  Country: None (occurrence: None)
  Receive Date: 20040914
  Receipt Date: 20040906
  Transmission Date: 20050211
  Serious: Yes (Death)
  Sender: FDA-Public Use
  Company Number: 2004210038NO

PATIENT
  Age: 57 Year
  Sex: 0

DRUGS (6)
  1. ZYVOX [Suspect]
     Indication: BRAIN ABSCESS
     Dosage: 600 MG, BID, ORAL
     Route: 048
     Dates: start: 20040302, end: 20040324
  2. VORIKONAZOL [Concomitant]
  3. ERYTHROMYCIN ^ESTAEDI^ (ERYTHROMYCIN ETHYLSUCCINATE) [Concomitant]
  4. CIPROXIN [Concomitant]
  5. METRONIDAZOLE [Concomitant]
  6. VANCOMYCIN [Concomitant]

REACTIONS (5)
  - BRAIN ABSCESS [None]
  - DRUG INEFFECTIVE [None]
  - ENTEROCOCCAL INFECTION [None]
  - STAPHYLOCOCCAL ABSCESS [None]
  - SYSTEMIC CANDIDA [None]
